FAERS Safety Report 6740388-X (Version None)
Quarter: 2010Q2

REPORT INFORMATION
  Report Type: 
  Country: None (occurrence: None)
  Receive Date: 20100525
  Receipt Date: 20100517
  Transmission Date: 20101027
  Serious: Yes (Life-Threatening, Hospitalization, Other)
  Sender: FDA-Public Use
  Company Number: GB-ELI_LILLY_AND_COMPANY-GB201002002952

PATIENT
  Sex: Female
  Weight: 50 kg

DRUGS (15)
  1. ZYPREXA [Suspect]
     Indication: PARANOIA
     Dosage: 5 MG, DAILY (1/D)
     Route: 048
     Dates: start: 20020201, end: 20091101
  2. VENLAFAXINE [Concomitant]
     Indication: DEPRESSION
     Dosage: 225 MG, UNKNOWN
  3. TEMAZEPAM [Concomitant]
     Indication: SLEEP DISORDER
     Dosage: 20 MG, DAILY (1/D)
  4. BENZODIAZEPINE DERIVATIVES [Concomitant]
  5. ANTIDEPRESSANTS [Concomitant]
     Indication: DEPRESSION
  6. ASPIRIN [Concomitant]
     Indication: THROMBOSIS
     Dosage: 75 MG, DAILY (1/D)
     Route: 048
  7. RAMIPRIL [Concomitant]
     Indication: HYPERTENSION
     Dosage: 2.5 MG, DAILY (1/D)
     Route: 048
  8. FUROSEMIDE [Concomitant]
     Indication: DIURETIC THERAPY
     Dosage: 40 MG, DAILY (1/D)
     Route: 048
  9. LANSOPRAZOLE [Concomitant]
     Indication: DYSPEPSIA
     Dosage: 30 MG, DAILY (1/D)
     Route: 048
  10. SOLIFENACIN [Concomitant]
     Indication: POLLAKIURIA
     Dosage: 5 MG, DAILY (1/D)
     Route: 048
  11. CALCICHEW [Concomitant]
     Indication: OSTEOPOROSIS
     Dosage: UNK, 2/D
  12. ALENDRONIC ACID [Concomitant]
     Indication: OSTEOPOROSIS
     Dosage: 70 MG, UNK
  13. FORTISIP [Concomitant]
  14. DOCUSATE SODIUM [Concomitant]
     Indication: CONSTIPATION
     Dosage: 100 MG, DAILY (1/D)
  15. MAGNESIUM HYDROXIDE TAB [Concomitant]
     Indication: CONSTIPATION
     Dosage: 100 ML, 2/D

REACTIONS (1)
  - MYOCARDIAL INFARCTION [None]
